FAERS Safety Report 8027500-X (Version None)
Quarter: 2011Q4

REPORT INFORMATION
  Report Type: 
  Country: None (occurrence: None)
  Receive Date: 20111130
  Receipt Date: 20110816
  Transmission Date: 20120403
  Serious: Yes (Death, Hospitalization, Other)
  Sender: FDA-Public Use
  Company Number: US201108005646

PATIENT
  Sex: Female

DRUGS (2)
  1. BYETTA [Suspect]
     Dosage: SUBCUTANEOUS
     Route: 058
     Dates: start: 20060101, end: 20090101
  2. VICTOZA [Concomitant]

REACTIONS (1)
  - PANCREATITIS NECROTISING [None]
